FAERS Safety Report 12627166 (Version 1)
Quarter: 2016Q3

REPORT INFORMATION
  Report Type: Spontaneous
  Country: GB (occurrence: GB)
  Receive Date: 20160805
  Receipt Date: 20160805
  Transmission Date: 20161109
  Serious: Yes (Other)
  Sender: FDA-Public Use
  Company Number: GB-UNICHEM LABORATORIES LIMITED-UCM201608-000170

PATIENT
  Age: 60 Year
  Sex: Female

DRUGS (2)
  1. DIVALPROEX SODIUM. [Suspect]
     Active Substance: DIVALPROEX SODIUM
     Indication: SEIZURE
  2. PHENYTOIN. [Concomitant]
     Active Substance: PHENYTOIN

REACTIONS (2)
  - Parkinsonism [Recovered/Resolved]
  - Encephalopathy [Recovered/Resolved]
